FAERS Safety Report 8934433 (Version 1)
Quarter: 2012Q4

REPORT INFORMATION
  Report Type: Report from Study
  Country: US (occurrence: US)
  Receive Date: 20121128
  Receipt Date: 20121128
  Transmission Date: 20130627
  Serious: Yes (Death, Life-Threatening, Disabling, Other)
  Sender: FDA-Public Use
  Company Number: US-009507513-1211USA010696

PATIENT
  Age: 65 Year
  Sex: Female
  Weight: 51.4 kg

DRUGS (6)
  1. SIMVASTATIN [Suspect]
     Indication: ACUTE CORONARY SYNDROME
     Dosage: 40 mg, qd
     Route: 048
     Dates: start: 20070615
  2. ASPIRIN [Suspect]
     Dosage: UNK
     Route: 048
     Dates: start: 20090101, end: 20121120
  3. METOPROLOL [Concomitant]
     Dosage: UNK
     Route: 048
     Dates: start: 20090601, end: 20121120
  4. LORAZEPAM [Concomitant]
     Dosage: UNK
     Route: 048
     Dates: start: 20120131, end: 20121120
  5. AMBIEN [Concomitant]
     Dosage: UNK
     Route: 048
     Dates: start: 20120131, end: 20121120
  6. PERCOCET [Concomitant]
     Dosage: daily dose: 20/1300mg
     Route: 048
     Dates: start: 20120131, end: 20121120

REACTIONS (1)
  - Metastases to central nervous system [Fatal]
